FAERS Safety Report 5782475-9 (Version None)
Quarter: 2008Q2

REPORT INFORMATION
  Report Type: 
  Country: None (occurrence: None)
  Receive Date: 20080623
  Receipt Date: 20080219
  Transmission Date: 20081010
  Serious: No
  Sender: FDA-Public Use
  Company Number: US-AMGEN-KDL265985

PATIENT
  Sex: Female

DRUGS (5)
  1. ARANESP [Suspect]
     Indication: RENAL FAILURE CHRONIC
     Dates: start: 20080101
  2. UNSPECIFIED ANTIDIABETIC AGENT [Concomitant]
  3. UNSPECIFIED ANTIHYPERTENSIVE AGENT [Concomitant]
  4. UNSPECIFIED ALLERGY MEDICATION [Concomitant]
  5. UNSPECIFIED MEDICATION [Concomitant]

REACTIONS (1)
  - URINARY TRACT INFECTION [None]
